FAERS Safety Report 8551905-1 (Version None)
Quarter: 2012Q3

REPORT INFORMATION
  Report Type: 
  Country: None (occurrence: None)
  Receive Date: 20120730
  Receipt Date: 20120719
  Transmission Date: 20120928
  Serious: Yes (Other)
  Sender: FDA-Public Use
  Company Number: CN-BAXTER-2012BAX012360

PATIENT
  Sex: Male
  Weight: 65 kg

DRUGS (2)
  1. EDARAVONE [Suspect]
     Indication: CEREBRAL INFARCTION
     Route: 042
  2. MANNITOL [Suspect]
     Indication: CEREBRAL INFARCTION
     Route: 041
     Dates: start: 20101023, end: 20101031

REACTIONS (1)
  - HYPERURICAEMIA [None]
